FAERS Safety Report 15754855 (Version 1)
Quarter: 2018Q4

REPORT INFORMATION
  Report Type: Spontaneous
  Country: FR (occurrence: FR)
  Receive Date: 20181224
  Receipt Date: 20181224
  Transmission Date: 20190205
  Serious: Yes (Other)
  Sender: FDA-Public Use
  Company Number: FR-MYLANLABS-2018M1093778

PATIENT
  Age: 25 Year
  Sex: Male

DRUGS (4)
  1. BACLOFEN. [Interacting]
     Active Substance: BACLOFEN
     Dosage: PRESENCE OF EIGHT EMPTY BOXES OF BACLOFEN (BOXES OF 50 X 10MG TABLETS). TAKING INTO ACCOUNT THE N...
     Route: 048
  2. BACLOFEN. [Suspect]
     Active Substance: BACLOFEN
     Indication: PRODUCT USED FOR UNKNOWN INDICATION
     Dosage: THREE TIMES A DAY
     Route: 048
  3. TIAPRIDE [Interacting]
     Active Substance: TIAPRIDE
     Indication: PRODUCT USED FOR UNKNOWN INDICATION
     Dosage: THREE TIMES A DAY
     Route: 065
  4. VALPROMIDE [Interacting]
     Active Substance: VALPROMIDE
     Indication: PRODUCT USED FOR UNKNOWN INDICATION
     Route: 065

REACTIONS (12)
  - Intentional overdose [Recovered/Resolved]
  - Rhonchi [Recovered/Resolved]
  - Mydriasis [Recovered/Resolved]
  - Depressed level of consciousness [Recovered/Resolved]
  - Encephalopathy [Recovered/Resolved]
  - Toxicity to various agents [Recovered/Resolved]
  - Metabolic acidosis [Recovered/Resolved]
  - Hyperlactacidaemia [Recovered/Resolved]
  - Seizure [Recovered/Resolved]
  - Coma [Recovered/Resolved]
  - Drug interaction [Recovered/Resolved]
  - Brain injury [Recovered/Resolved]
